FAERS Safety Report 17856835 (Version 3)
Quarter: 2020Q3

REPORT INFORMATION
  Report Type: Spontaneous
  Country: US (occurrence: US)
  Receive Date: 20200603
  Receipt Date: 20200717
  Transmission Date: 20201103
  Serious: No
  Sender: FDA-Public Use
  Company Number: US-PFIZER INC-2020159992

PATIENT
  Age: 66 Year
  Sex: Female

DRUGS (1)
  1. SOMAVERT [Suspect]
     Active Substance: PEGVISOMANT
     Indication: ACROMEGALY
     Dosage: 10 MG, DAILY
     Route: 058
     Dates: start: 20200507, end: 20200707

REACTIONS (9)
  - Injection site haemorrhage [Unknown]
  - Contusion [Unknown]
  - Arthralgia [Unknown]
  - Joint swelling [Unknown]
  - Headache [Unknown]
  - Product dose omission issue [Unknown]
  - Neuralgia [Unknown]
  - Pain [Unknown]
  - Injection site mass [Unknown]

NARRATIVE: CASE EVENT DATE: 2020
